FAERS Safety Report 6414559-6 (Version None)
Quarter: 2009Q4

REPORT INFORMATION
  Report Type: 
  Country: None (occurrence: None)
  Receive Date: 20091021
  Receipt Date: 20060714
  Transmission Date: 20100525
  Serious: Yes (Other)
  Sender: FDA-Public Use
  Company Number: 1000003105

PATIENT
  Age: 35 Year
  Sex: Male

DRUGS (3)
  1. LEXAPRO [Suspect]
     Indication: DEPRESSION
  2. XANAX [Concomitant]
  3. ALCOHOL [Concomitant]

REACTIONS (2)
  - ALCOHOL USE [None]
  - HOMICIDE [None]
